FAERS Safety Report 5640129-3 (Version None)
Quarter: 2008Q1

REPORT INFORMATION
  Report Type: 
  Country: None (occurrence: None)
  Receive Date: 20080225
  Receipt Date: 20080218
  Transmission Date: 20080703
  Serious: Yes (Death)
  Sender: FDA-Public Use
  Company Number: A0711385A

PATIENT
  Age: 80 Year
  Sex: Male
  Weight: 61.8706 kg

DRUGS (5)
  1. ADVAIR DISKUS 100/50 [Suspect]
     Indication: EMPHYSEMA
     Dosage: TWICE PER DAY / INHALED
     Route: 055
     Dates: start: 20060918, end: 20070920
  2. ENALAPRIL MALEATE [Concomitant]
  3. TIOTROPIUM [Concomitant]
  4. WARFARIN SODIUM [Concomitant]
  5. BUDESONIDE [Concomitant]

REACTIONS (1)
  - DEATH [None]
